FAERS Safety Report 4375105-4 (Version None)
Quarter: 2004Q2

REPORT INFORMATION
  Report Type: 
  Country: None (occurrence: None)
  Receive Date: 20040609
  Receipt Date: 20040602
  Transmission Date: 20050107
  Serious: Yes (Hospitalization, Other)
  Sender: FDA-Public Use
  Company Number: JP-MERCK-0406USA00268

PATIENT
  Age: 49 Year
  Sex: Male

DRUGS (3)
  1. SINGULAIR [Suspect]
     Route: 048
     Dates: start: 20010201, end: 20020401
  2. PRANLUKAST [Suspect]
     Route: 065
     Dates: end: 20010201
  3. ZAFIRLUKAST [Suspect]
     Route: 065
     Dates: start: 20020401, end: 20020701

REACTIONS (1)
  - ALLERGIC GRANULOMATOUS ANGIITIS [None]
